FAERS Safety Report 15116999 (Version 2)
Quarter: 2018Q3

REPORT INFORMATION
  Report Type: Spontaneous
  Country: IT (occurrence: IT)
  Receive Date: 20180706
  Receipt Date: 20180713
  Transmission Date: 20181010
  Serious: Yes (Other)
  Sender: FDA-Public Use
  Company Number: IT-TEVA-2018-IT-920859

PATIENT
  Age: 49 Year
  Sex: Male

DRUGS (2)
  1. QUETIAPINE. [Suspect]
     Active Substance: QUETIAPINE
     Indication: SEDATION
     Route: 048
  2. ALPRAZOLAM. [Suspect]
     Active Substance: ALPRAZOLAM
     Indication: SEDATION
     Route: 048
     Dates: start: 20180515, end: 20180515

REACTIONS (4)
  - Loss of consciousness [Recovering/Resolving]
  - Drug abuse [Recovering/Resolving]
  - Toxicity to various agents [Recovering/Resolving]
  - Clonus [Recovering/Resolving]

NARRATIVE: CASE EVENT DATE: 20180515
